FAERS Safety Report 9638799 (Version 1)
Quarter: 2013Q4

REPORT INFORMATION
  Report Type: Spontaneous
  Country: US (occurrence: US)
  Receive Date: 20131022
  Receipt Date: 20131022
  Transmission Date: 20140711
  Serious: No
  Sender: FDA-Public Use
  Company Number: US-BRISTOL-MYERS SQUIBB COMPANY-19174044

PATIENT
  Age: 69 Year
  Sex: Female
  Weight: 145.12 kg

DRUGS (8)
  1. ELIQUIS [Suspect]
     Indication: ATRIAL FIBRILLATION
     Dosage: RX: 042361166226
  2. MONISTAT [Suspect]
  3. MULTAQ [Concomitant]
  4. DEXAMETHASONE [Concomitant]
     Dosage: NASAL SPRAY
     Route: 045
  5. VALIUM [Concomitant]
  6. LASIX [Concomitant]
  7. POTASSIUM CHLORIDE [Concomitant]
  8. DIOVAN [Concomitant]

REACTIONS (3)
  - Cellulitis [Unknown]
  - Dizziness [Recovered/Resolved]
  - Weight decreased [Unknown]
